FAERS Safety Report 24137751 (Version 2)
Quarter: 2024Q3

REPORT INFORMATION
  Report Type: Spontaneous
  Country: CZ (occurrence: CZ)
  Receive Date: 20240725
  Receipt Date: 20240812
  Transmission Date: 20241017
  Serious: Yes (Other)
  Sender: FERRING
  Company Number: None

PATIENT

DRUGS (1)
  1. FIRMAGON [Suspect]
     Active Substance: DEGARELIX ACETATE
     Indication: Prostate cancer metastatic
     Dosage: 80 MG (3RD DOSE)
     Route: 058
     Dates: start: 20240430, end: 20240625

REACTIONS (4)
  - Condition aggravated [Recovering/Resolving]
  - Nausea [Recovering/Resolving]
  - Vomiting [Recovering/Resolving]
  - Administration site reaction [Recovering/Resolving]

NARRATIVE: CASE EVENT DATE: 20240625
